FAERS Safety Report 4503762-8 (Version None)
Quarter: 2004Q3

REPORT INFORMATION
  Report Type: 
  Country: None (occurrence: None)
  Receive Date: 20040928
  Receipt Date: 20040728
  Transmission Date: 20050211
  Serious: No
  Sender: FDA-Public Use
  Company Number: 04P-163-0263750-00

PATIENT
  Age: 78 Year
  Sex: Male
  Weight: 72.5755 kg

DRUGS (16)
  1. HUMIRA [Suspect]
     Indication: RHEUMATOID ARTHRITIS
     Dosage: 40 MG, 1 IN 2 WK, SUBCUTANEOUS;  40 MG, 1 IN 1 WK, SUBCUTANEOUS
     Route: 058
     Dates: start: 20040401, end: 20040719
  2. HUMIRA [Suspect]
     Indication: RHEUMATOID ARTHRITIS
     Dosage: 40 MG, 1 IN 2 WK, SUBCUTANEOUS;  40 MG, 1 IN 1 WK, SUBCUTANEOUS
     Route: 058
     Dates: start: 20040719
  3. TERAZOSIN HCL [Concomitant]
  4. FOLIC ACID [Concomitant]
  5. DILTIAZEM [Concomitant]
  6. FLUNISOLIDE [Concomitant]
  7. TEMAZEPAM [Concomitant]
  8. CALCIUM [Concomitant]
  9. SALMON OIL [Concomitant]
  10. LINSEED OIL [Concomitant]
  11. SUPER B COMPLEX [Concomitant]
  12. CHOLESOFF [Concomitant]
  13. IBUPROFEN [Concomitant]
  14. FLOXSUDOIL [Concomitant]
  15. MULTI-VITAMINS [Concomitant]
  16. FLUNISOLIDE [Concomitant]

REACTIONS (5)
  - DRUG INEFFECTIVE [None]
  - HYPERAESTHESIA [None]
  - INJECTION SITE ERYTHEMA [None]
  - INJECTION SITE PRURITUS [None]
  - INJECTION SITE SWELLING [None]
